FAERS Safety Report 16994950 (Version 3)
Quarter: 2020Q1

REPORT INFORMATION
  Report Type: Report from Study
  Country: BE (occurrence: BE)
  Receive Date: 20191105
  Receipt Date: 20200113
  Transmission Date: 20200409
  Serious: Yes (Hospitalization, Other)
  Sender: FDA-Public Use
  Company Number: BE-PFIZER INC-2019471347

PATIENT
  Age: 72 Year
  Sex: Male
  Weight: 66 kg

DRUGS (23)
  1. LEUCOVORIN [FOLINIC ACID] [Suspect]
     Active Substance: LEUCOVORIN
     Dosage: 3111.6 MG, EVERY TWO WEEKS
     Route: 042
     Dates: start: 20190508
  2. DAFALGAN [Concomitant]
     Active Substance: ACETAMINOPHEN
     Dosage: 1 G, UNK
     Route: 065
     Dates: start: 20181113
  3. 5 FLUORO URACIL [Suspect]
     Active Substance: FLUOROURACIL
     Dosage: 3111.6 MG, EVERY TWO WEEKS
     Route: 042
     Dates: start: 20190508
  4. LEUCOVORIN [FOLINIC ACID] [Suspect]
     Active Substance: LEUCOVORIN
     Dosage: 1 (UNIT NOT REPORTED), EVERY TWO WEEKS
     Route: 042
     Dates: start: 20181127
  5. PROGOR [Concomitant]
     Active Substance: DILTIAZEM HYDROCHLORIDE
     Dosage: UNK
     Route: 065
     Dates: start: 20140312
  6. ALDACTONE [Concomitant]
     Active Substance: SPIRONOLACTONE
     Indication: OEDEMA PERIPHERAL
     Dosage: UNK
     Route: 065
     Dates: start: 20181217
  7. CLEXANE [Concomitant]
     Active Substance: ENOXAPARIN SODIUM
     Dosage: 80 MG, UNK
     Route: 065
     Dates: start: 20190206
  8. ZINC OXIDE. [Concomitant]
     Active Substance: ZINC OXIDE
     Indication: PROCTALGIA
     Dosage: UNK
     Route: 065
     Dates: start: 20181127
  9. IRINOTECAN HCL [Suspect]
     Active Substance: IRINOTECAN HYDROCHLORIDE
     Dosage: 1 (UNIT NOT REPORTED), EVERY TWO WEEKS
     Route: 042
     Dates: start: 20181114
  10. BEVACIZUMAB. [Suspect]
     Active Substance: BEVACIZUMAB
     Indication: COLORECTAL CANCER METASTATIC
     Dosage: 1 (UNIT NOT REPORTED), EVERY TWO WEEKS
     Route: 042
     Dates: start: 20181114
  11. BEVACIZUMAB. [Suspect]
     Active Substance: BEVACIZUMAB
     Dosage: 305 MG, EVERY TWO WEEKS
     Route: 042
     Dates: start: 20190508
  12. 5 FLUORO URACIL [Suspect]
     Active Substance: FLUOROURACIL
     Indication: COLORECTAL CANCER METASTATIC
     Dosage: 1 (UNIT NOT REPORTED), EVERY TWO WEEKS
     Route: 042
     Dates: start: 20181114, end: 20181116
  13. ASAFLOW [Suspect]
     Active Substance: ASPIRIN
     Indication: COLORECTAL CANCER METASTATIC
     Dosage: UNK
     Route: 065
     Dates: start: 20180808, end: 20190206
  14. LASIX [Concomitant]
     Active Substance: FUROSEMIDE
     Indication: PLEURAL EFFUSION
     Dosage: UNK
     Route: 065
     Dates: start: 20190527, end: 20190527
  15. IRINOTECAN HCL [Suspect]
     Active Substance: IRINOTECAN HYDROCHLORIDE
     Indication: COLORECTAL CANCER METASTATIC
     Dosage: 156 MG, EVERY TWO WEEKS
     Route: 042
     Dates: start: 20190508
  16. ACETYLCYSTEINE. [Concomitant]
     Active Substance: ACETYLCYSTEINE
     Dosage: UNK
     Route: 065
     Dates: start: 2013
  17. OMEPRAZOLE. [Concomitant]
     Active Substance: OMEPRAZOLE
     Dosage: 20 MG, 1X/DAY
     Route: 065
     Dates: start: 20181113
  18. LITICAN [ALIZAPRIDE HYDROCHLORIDE] [Concomitant]
     Dosage: 50 MG, UNK
     Route: 065
     Dates: start: 20181113
  19. LANOXIN [Concomitant]
     Active Substance: DIGOXIN
     Indication: ATRIAL FIBRILLATION
     Dosage: 0.25 MG, UNK
     Route: 065
     Dates: start: 20190206
  20. 5 FLUORO URACIL [Suspect]
     Active Substance: FLUOROURACIL
     Dosage: 1 (UNIT NOT REPORTED), EVERY TWO WEEKS
     Route: 042
     Dates: start: 20181127
  21. LEUCOVORIN [FOLINIC ACID] [Suspect]
     Active Substance: LEUCOVORIN
     Indication: COLORECTAL CANCER METASTATIC
     Dosage: 1 (UNIT NOT REPORTED), EVERY TWO WEEKS
     Route: 042
     Dates: start: 20181114, end: 20181116
  22. IMODIUM [Concomitant]
     Active Substance: LOPERAMIDE HYDROCHLORIDE
     Indication: DIARRHOEA
     Dosage: 2 MG, UNK
     Route: 065
  23. SEEBRI BREEZHALER [Concomitant]
     Active Substance: GLYCOPYRROLATE
     Dosage: UNK
     Route: 065
     Dates: start: 20131216

REACTIONS (20)
  - Pneumonia [Recovered/Resolved]
  - Parainfluenzae virus infection [Recovered/Resolved]
  - Constipation [Not Recovered/Not Resolved]
  - Moraxella infection [Recovered/Resolved]
  - Dyspnoea exertional [Not Recovered/Not Resolved]
  - Hypokalaemia [Recovered/Resolved]
  - Back pain [Not Recovered/Not Resolved]
  - Stomatitis [Not Recovered/Not Resolved]
  - Hyponatraemia [Recovered/Resolved]
  - Asthenia [Unknown]
  - General physical health deterioration [Not Recovered/Not Resolved]
  - Diarrhoea [Not Recovered/Not Resolved]
  - Atrial fibrillation [Not Recovered/Not Resolved]
  - Oedema peripheral [Recovered/Resolved]
  - Diarrhoea [Recovered/Resolved]
  - Proctalgia [Not Recovered/Not Resolved]
  - Decreased appetite [Recovered/Resolved]
  - Oral herpes [Recovered/Resolved]
  - Pleural effusion [Recovered/Resolved]
  - Fall [Unknown]

NARRATIVE: CASE EVENT DATE: 20181113
